FAERS Safety Report 12625139 (Version 1)
Quarter: 2016Q3

REPORT INFORMATION
  Report Type: Report from Study
  Country: US (occurrence: US)
  Receive Date: 20160805
  Receipt Date: 20160805
  Transmission Date: 20161109
  Serious: Yes (Other)
  Sender: FDA-Public Use
  Company Number: US-BAYER-2016-147161

PATIENT
  Age: 64 Year
  Sex: Female
  Weight: 70.3 kg

DRUGS (8)
  1. MELOXICAM. [Concomitant]
     Active Substance: MELOXICAM
  2. ALEVE [Concomitant]
     Active Substance: NAPROXEN SODIUM
  3. AMLODIPINE [Concomitant]
     Active Substance: AMLODIPINE BESYLATE
  4. ALPRAZOLAM. [Concomitant]
     Active Substance: ALPRAZOLAM
  5. DELSYM [Concomitant]
     Active Substance: DEXTROMETHORPHAN
  6. SIMVASTATIN. [Concomitant]
     Active Substance: SIMVASTATIN
  7. NEXAVAR [Suspect]
     Active Substance: SORAFENIB
     Indication: RENAL CANCER
     Dosage: 400 MG, BID
     Dates: start: 20160706, end: 20160726
  8. CHONDROITIN W/GLUCOSAMINE [Concomitant]

REACTIONS (4)
  - Pain in extremity [Unknown]
  - Gait disturbance [Unknown]
  - Blister [Unknown]
  - Rash [Unknown]

NARRATIVE: CASE EVENT DATE: 20160723
